FAERS Safety Report 9804778 (Version 2)
Quarter: 2014Q1

REPORT INFORMATION
  Report Type: Report from Study
  Country: US (occurrence: US)
  Receive Date: 20140108
  Receipt Date: 20140108
  Transmission Date: 20141002
  Serious: Yes (Hospitalization, Other)
  Sender: FDA-Public Use
  Company Number: US-TAKEDA-2013TUS002346

PATIENT
  Age: 76 Year
  Sex: Female
  Weight: 56.2 kg

DRUGS (65)
  1. BLINDED ALLOPURINOL [Suspect]
     Indication: HYPERURICAEMIA
     Dosage: UNK, QD
     Route: 048
     Dates: start: 20120821
  2. BLINDED FEBUXOSTAT [Suspect]
     Indication: HYPERURICAEMIA
     Dosage: UNK, QD
     Route: 048
     Dates: start: 20120821
  3. POTASSIUM CHLORIDE [Concomitant]
     Indication: HYPERTENSION
     Dosage: 20 MEQ, TID
     Route: 048
     Dates: start: 20070720, end: 20131112
  4. POTASSIUM CHLORIDE [Concomitant]
     Dosage: 20/100 MEQ/ML, PRN
     Route: 042
     Dates: start: 20131112, end: 20131123
  5. VITAMIN D [Concomitant]
     Indication: VITAMIN D DEFICIENCY
     Dosage: 50000 UNITS, 1/WEEK
     Route: 048
     Dates: start: 20120225
  6. OMEPRAZOLE [Concomitant]
     Indication: GASTROOESOPHAGEAL REFLUX DISEASE
     Dosage: 20 MG, BID
     Route: 048
     Dates: start: 20100506, end: 20131112
  7. METFORMIN HCL [Concomitant]
     Indication: DIABETES MELLITUS
     Dosage: 500 MG, BID
     Route: 048
     Dates: start: 20071206
  8. LYRICA [Concomitant]
     Indication: DIABETIC NEUROPATHY
     Dosage: 150 MG, TID
     Route: 048
     Dates: start: 20080213
  9. LIPITOR [Concomitant]
     Indication: HYPERLIPIDAEMIA
     Dosage: 80 MG, 1/4 QHS
     Route: 048
     Dates: start: 20041115, end: 20131112
  10. LEVOTHYROXINE SODIUM [Concomitant]
     Indication: HYPOTHYROIDISM
     Dosage: 50 ?G, QD
     Route: 048
     Dates: start: 20070905
  11. FUROSEMIDE [Concomitant]
     Indication: HYPERTENSION
     Dosage: 80 MG, QD
     Route: 048
     Dates: start: 20071211, end: 20131112
  12. FUROSEMIDE [Concomitant]
     Indication: ASTHENIA
     Dosage: 10 MG/ML, QD
     Route: 042
     Dates: start: 20131013, end: 20131017
  13. FUROSEMIDE [Concomitant]
     Dosage: 20 MG, TID
     Route: 042
     Dates: start: 20131117, end: 20131123
  14. FUROSEMIDE [Concomitant]
     Dosage: 40 MG, BID
     Route: 048
     Dates: start: 20131112, end: 20131211
  15. OXYCODONE WITH APAP [Concomitant]
     Indication: ARTHRALGIA
     Dosage: 5/325 MG, PRN
     Route: 048
     Dates: start: 20100922, end: 20131112
  16. OXYCODONE WITH APAP [Concomitant]
     Indication: BACK PAIN
  17. ASPIRIN EC [Concomitant]
     Indication: ROUTINE HEALTH MAINTENANCE
     Dosage: 81 MG, QD
     Route: 048
     Dates: start: 20060101
  18. GLUCOSAMINE [Concomitant]
     Indication: ARTHRALGIA
     Dosage: 750 MG, QD
     Route: 048
     Dates: start: 2010
  19. CHONDROITIN [Concomitant]
     Indication: ARTHRALGIA
     Dosage: 600 MG, QD
     Route: 048
     Dates: start: 2010
  20. CELEBREX [Concomitant]
     Indication: ARTHRALGIA
     Dosage: 200 MG, PRN
     Route: 048
     Dates: start: 20120919, end: 20131112
  21. CELEBREX [Concomitant]
     Indication: BACK PAIN
     Dosage: 50 MG, BID
     Route: 048
     Dates: start: 20131112
  22. CELEBREX [Concomitant]
     Indication: BACK PAIN
  23. COLCHICINE [Concomitant]
     Indication: GOUT
     Dosage: 0.6 MG, QD
     Route: 048
     Dates: start: 20120821, end: 20130219
  24. COLCHICINE [Concomitant]
     Dosage: 0.6 MG, QD
     Route: 048
     Dates: start: 20130815, end: 201310
  25. NIFEREX [Concomitant]
     Indication: ROUTINE HEALTH MAINTENANCE
     Dosage: 60 MG, TID
     Route: 048
     Dates: start: 20131012
  26. NORCO [Concomitant]
     Indication: ARTHRALGIA
     Dosage: 5/325 MG/ML, QID PRN
     Route: 048
     Dates: start: 20131017, end: 20131027
  27. NORCO [Concomitant]
     Indication: BACK PAIN
  28. DUONEB [Concomitant]
     Indication: EMPHYSEMA
     Dosage: 2.5/3 MG/ML, QID PRN
     Route: 048
     Dates: start: 20131013, end: 201311
  29. NEUTRA-PHOS                        /00555301/ [Concomitant]
     Indication: ASTHENIA
     Dosage: 278-164-250 MG, QID
     Route: 048
     Dates: start: 20131013, end: 20131017
  30. MYLANTA [Concomitant]
     Indication: ROUTINE HEALTH MAINTENANCE
     Dosage: 311/232 MG, PRN
     Route: 048
     Dates: start: 20131014, end: 20131014
  31. MYLANTA [Concomitant]
     Indication: CONSTIPATION
     Dosage: 311/232 MG, PRN
     Route: 048
     Dates: start: 20131112
  32. ACETAMINOPHEN [Concomitant]
     Indication: ASTHENIA
     Dosage: 500 MG, QID
     Route: 048
     Dates: start: 20131015, end: 20131017
  33. ACETAMINOPHEN [Concomitant]
     Indication: SYNCOPE
     Dosage: 500 MG, Q6H PRN
     Route: 048
     Dates: start: 20131113, end: 20131123
  34. SODIUM CHLORIDE [Concomitant]
     Indication: ASTHENIA
     Dosage: 0.9 % 1000 ML ONCE
     Route: 042
     Dates: start: 20131013, end: 20131013
  35. SODIUM CHLORIDE [Concomitant]
     Indication: ROUTINE HEALTH MAINTENANCE
     Dosage: 0.9 % 500 ML ONCE
     Route: 042
     Dates: start: 20131015, end: 20131015
  36. SODIUM CHLORIDE [Concomitant]
     Dosage: 20 MEQ/100 ML,ONCE
     Route: 042
     Dates: start: 20131112, end: 20131123
  37. LEVOQUIN [Concomitant]
     Indication: ASTHENIA
     Dosage: 500 MG, QD
     Route: 042
     Dates: start: 20131013, end: 20131013
  38. LEVOQUIN [Concomitant]
     Indication: PROPHYLAXIS
     Dosage: 750 MG, QD
     Route: 048
     Dates: start: 20131017, end: 20131021
  39. ISOVUE 370 (IOPAMIDOL) [Concomitant]
     Indication: ASTHENIA
     Dosage: 76 % 100 ML, ONCE
     Route: 042
     Dates: start: 20131013, end: 20131013
  40. ISOVUE 370 (IOPAMIDOL) [Concomitant]
     Indication: SYNCOPE
     Dosage: 76 % 100 ML, ONCE
     Route: 042
     Dates: start: 20131015, end: 20131015
  41. ISOVUE 370 (IOPAMIDOL) [Concomitant]
     Dosage: 100 ML, ONCE
     Route: 042
     Dates: start: 20131115, end: 20131115
  42. MAGNEVIST [Concomitant]
     Indication: ASTHENIA
     Dosage: 12 (0.1 MMOL/KG X 60.1 KG) ML, ONCE
     Route: 042
     Dates: start: 20131014, end: 20131014
  43. MAGNEVIST [Concomitant]
     Indication: ROUTINE HEALTH MAINTENANCE
     Dosage: 12 ML, ONCE
     Dates: start: 20131114, end: 20131114
  44. MORPHINE [Concomitant]
     Indication: ASTHENIA
     Dosage: 2 MG, Q HOUR PRN
     Route: 042
     Dates: start: 20131013, end: 20131017
  45. DULCOLAX  SUPPOSITORY [Concomitant]
     Indication: ROUTINE HEALTH MAINTENANCE
     Dosage: 10 MG, PRN
     Route: 054
     Dates: start: 20131113, end: 20131123
  46. NORCURON [Concomitant]
     Indication: ACUTE RESPIRATORY FAILURE
     Dosage: 1 UNITS, ONCE
     Route: 042
     Dates: start: 20131112, end: 20131112
  47. VANCOMYCIN [Concomitant]
     Indication: ROUTINE HEALTH MAINTENANCE
     Dosage: 1000 MG, ONCE
     Route: 042
     Dates: start: 20131112, end: 20131112
  48. PROPOVEN [Concomitant]
     Indication: ACUTE RESPIRATORY FAILURE
     Dosage: 1000/100 MG/ML, ONCE
     Route: 042
     Dates: start: 20131112, end: 20131112
  49. MIRALAX [Concomitant]
     Indication: ROUTINE HEALTH MAINTENANCE
     Dosage: 17 G, PRN
     Route: 048
     Dates: start: 20131116, end: 20131123
  50. ZOSYN [Concomitant]
     Indication: ROUTINE HEALTH MAINTENANCE
     Dosage: 3.375 G, ONCE
     Route: 042
     Dates: start: 20131112, end: 20131112
  51. PROTONIX [Concomitant]
     Indication: ROUTINE HEALTH MAINTENANCE
     Dosage: 40 MG, QD
     Route: 042
     Dates: start: 20131112, end: 20131123
  52. PERCOCET [Concomitant]
     Indication: SYNCOPE
     Dosage: 7.5/325 MG, Q4H PRN
     Route: 048
     Dates: start: 20131114, end: 20131123
  53. ZOFRAN                             /00955301/ [Concomitant]
     Indication: SYNCOPE
     Dosage: 4 MG, PRN
     Route: 042
     Dates: start: 20131112, end: 20131123
  54. LEVOPHED [Concomitant]
     Indication: ROUTINE HEALTH MAINTENANCE
     Dosage: 1 MG/ML, PRN
     Route: 030
     Dates: start: 20131112, end: 20131112
  55. NARCAN [Concomitant]
     Indication: ACUTE RESPIRATORY FAILURE
     Dosage: 1 UNITS, ONCE
     Route: 042
     Dates: start: 20131112, end: 20131112
  56. MAGNESIUM SULFATE [Concomitant]
     Indication: ROUTINE HEALTH MAINTENANCE
     Dosage: 2 G, PRN
     Route: 042
     Dates: start: 20131112, end: 20131123
  57. CHRONULAC [Concomitant]
     Indication: ROUTINE HEALTH MAINTENANCE
     Dosage: 20 G, PRN
     Route: 048
     Dates: start: 20131114, end: 20131123
  58. NOVOLOG [Concomitant]
     Indication: DIABETES MELLITUS
     Dosage: 1-7 IU, PRN
     Route: 058
     Dates: start: 20131112, end: 20131123
  59. 12 G GLUCOSE CHEWABLE [Concomitant]
     Indication: DIABETES MELLITUS
     Dosage: 3 DF, PRN
     Route: 048
     Dates: start: 20131112, end: 20131123
  60. AMIDATE                            /00466801/ [Concomitant]
     Indication: ACUTE RESPIRATORY FAILURE
     Dosage: 1 UNITS, ONCE
     Route: 042
     Dates: start: 20131112, end: 20131112
  61. COLACE [Concomitant]
     Indication: ROUTINE HEALTH MAINTENANCE
     Dosage: 100 MG, PRN
     Route: 048
     Dates: start: 20131114, end: 20131203
  62. DEXTROSE 50 % [Concomitant]
     Indication: ROUTINE HEALTH MAINTENANCE
     Dosage: 25 ML, PRN
     Route: 042
     Dates: start: 20131112, end: 20131123
  63. BARIUM [Concomitant]
     Indication: DIAGNOSTIC PROCEDURE
     Dosage: 32 OZ, ONCE
     Route: 048
     Dates: start: 20131115, end: 20131115
  64. PROVENTIL                          /00139501/ [Concomitant]
     Indication: EMPHYSEMA
     Dosage: 2.5 MG, QID PRN
     Route: 050
     Dates: start: 20131112, end: 20131112
  65. GLUCAGON [Concomitant]
     Indication: DIABETES MELLITUS
     Dosage: 1 MG, PRN
     Route: 030
     Dates: start: 20131112, end: 20131123

REACTIONS (5)
  - Asthenia [Recovered/Resolved with Sequelae]
  - Cardiac arrest [Recovered/Resolved]
  - Acute respiratory failure [Recovered/Resolved with Sequelae]
  - Syncope [Recovered/Resolved]
  - Cervical spinal stenosis [Recovered/Resolved]
